FAERS Safety Report 19379762 (Version 1)
Quarter: 2021Q2

REPORT INFORMATION
  Report Type: Spontaneous
  Country: US (occurrence: US)
  Receive Date: 20210607
  Receipt Date: 20210607
  Transmission Date: 20210717
  Serious: No
  Sender: FDA-Public Use
  Company Number: US-TEVA-2021-US-1914323

PATIENT
  Age: 53 Year
  Sex: Female

DRUGS (2)
  1. DIAZEPAM. [Suspect]
     Active Substance: DIAZEPAM
     Indication: HEART RATE INCREASED
     Route: 065
     Dates: end: 20210514
  2. DIAZEPAM. [Suspect]
     Active Substance: DIAZEPAM
     Indication: BLOOD PRESSURE INCREASED

REACTIONS (12)
  - Agitation [Unknown]
  - Anger [Unknown]
  - Off label use [Unknown]
  - Dry mouth [Unknown]
  - Abnormal behaviour [Unknown]
  - Aggression [Unknown]
  - Rapid eye movements sleep abnormal [Unknown]
  - Feeling abnormal [Unknown]
  - Irritability [Unknown]
  - Headache [Unknown]
  - Foaming at mouth [Unknown]
  - Fear [Unknown]

NARRATIVE: CASE EVENT DATE: 20210514
